FAERS Safety Report 11400059 (Version 1)
Quarter: 2015Q3

REPORT INFORMATION
  Report Type: Spontaneous
  Country: US (occurrence: US)
  Receive Date: 20150820
  Receipt Date: 20150820
  Transmission Date: 20151125
  Serious: No
  Sender: FDA-Public Use
  Company Number: US-ACTELION PHARMACEUTICALS US, INC.-A-US2015-119595

PATIENT
  Age: 33 Year
  Sex: Male

DRUGS (2)
  1. TRACLEER [Suspect]
     Active Substance: BOSENTAN
     Indication: PULMONARY ARTERIAL HYPERTENSION
     Dosage: UNK
     Route: 048
  2. TREPROSTINIL [Concomitant]
     Active Substance: TREPROSTINIL

REACTIONS (3)
  - Drug dose omission [Unknown]
  - Dyspnoea exertional [Unknown]
  - Dyspnoea [Unknown]
